FAERS Safety Report 9240536 (Version 2)
Quarter: 2013Q3

REPORT INFORMATION
  Report Type: Spontaneous
  Country: DK (occurrence: FR)
  Receive Date: 20130418
  Receipt Date: 20130906
  Transmission Date: 20140515
  Serious: Yes (Hospitalization)
  Sender: FDA-Public Use
  Company Number: FR-FRI-1000044441

PATIENT
  Age: 46 Year
  Sex: Male

DRUGS (4)
  1. ESCITALOPRAM [Suspect]
     Indication: DEPRESSION
     Dosage: 1 DF
     Route: 048
  2. PREVISCAN [Suspect]
     Indication: FACTOR V LEIDEN MUTATION
     Route: 048
     Dates: end: 20130119
  3. IMOVANE [Concomitant]
  4. ALPRAZOLAM [Concomitant]

REACTIONS (3)
  - Gastrointestinal haemorrhage [Recovered/Resolved]
  - Melaena [Recovered/Resolved]
  - Haematuria [Recovered/Resolved]
